FAERS Safety Report 17126040 (Version 1)
Quarter: 2019Q4

REPORT INFORMATION
  Report Type: Spontaneous
  Country: UA (occurrence: UA)
  Receive Date: 20191209
  Receipt Date: 20191209
  Transmission Date: 20200122
  Serious: Yes (Other)
  Sender: FDA-Public Use
  Company Number: UA-EMD SERONO-9133279

PATIENT
  Age: 10 Year
  Sex: Female

DRUGS (2)
  1. SAIZEN [Suspect]
     Active Substance: SOMATROPIN
     Dosage: DOSE REDUCED- FOR TWO WEEKS (CONSIDERING IN FUTURE RETURN TO THE DOSE OF 1.4 MG/KG)
     Route: 058
     Dates: start: 2019
  2. SAIZEN [Suspect]
     Active Substance: SOMATROPIN
     Indication: TURNER^S SYNDROME
     Dosage: (EVEN REPORTED AS 1.4 MG/M2)
     Route: 058
     Dates: start: 20191129, end: 2019

REACTIONS (3)
  - Nausea [Unknown]
  - Headache [Unknown]
  - Vomiting [Unknown]

NARRATIVE: CASE EVENT DATE: 20191129
